FAERS Safety Report 21081237 (Version 1)
Quarter: 2022Q3

REPORT INFORMATION
  Report Type: Spontaneous
  Country: US (occurrence: None)
  Receive Date: 20220713
  Receipt Date: 20220713
  Transmission Date: 20221027
  Serious: No
  Sender: FDA-Public Use
  Company Number: None

PATIENT
  Age: 63 Year
  Sex: Female
  Weight: 49.5 kg

DRUGS (9)
  1. PAXLOVID [Suspect]
     Active Substance: NIRMATRELVIR\RITONAVIR
     Indication: COVID-19
     Dosage: OTHER QUANTITY : 3 TABLET(S);?FREQUENCY : TWICE A DAY;?
     Route: 048
     Dates: start: 20220525, end: 20220530
  2. CLONAZEPAM [Concomitant]
     Active Substance: CLONAZEPAM
  3. Vitamin C+Zinc [Concomitant]
  4. CALCIUM [Concomitant]
     Active Substance: CALCIUM
  5. womens Daily [Concomitant]
  6. PROBIOTICS NOS [Concomitant]
     Active Substance: PROBIOTICS NOS
  7. Ocyvite [Concomitant]
  8. LYSINE [Concomitant]
     Active Substance: LYSINE
  9. IRON [Concomitant]
     Active Substance: IRON

REACTIONS (3)
  - Dysgeusia [None]
  - Insomnia [None]
  - Therapeutic response unexpected [None]

NARRATIVE: CASE EVENT DATE: 20220525
